FAERS Safety Report 7123784-0 (Version None)
Quarter: 2010Q4

REPORT INFORMATION
  Report Type: 
  Country: None (occurrence: None)
  Receive Date: 20101125
  Receipt Date: 20101115
  Transmission Date: 20110411
  Serious: Yes (Hospitalization)
  Sender: FDA-Public Use
  Company Number: PHEH2010US00574

PATIENT
  Sex: Female

DRUGS (9)
  1. EXJADE [Suspect]
     Indication: IRON OVERLOAD
     Dosage: 1000 MG, QD
     Route: 048
  2. EXJADE [Suspect]
     Dosage: 500 MG, QD
     Route: 048
     Dates: start: 20091207, end: 20100721
  3. EXJADE [Suspect]
     Dosage: UNK
     Route: 048
     Dates: start: 20101008
  4. ALENDRONATE SODIUM [Concomitant]
     Dosage: 70 MG, QW
     Route: 048
  5. COUMADIN [Concomitant]
     Dosage: 5 MG, QD
  6. FOLIC ACID [Concomitant]
     Dosage: 1 MG, QD
  7. LASIX [Concomitant]
     Dosage: 80 MG, BID
  8. METOPROLOL SUCCINATE [Concomitant]
     Dosage: 1.5 MG, QD
     Route: 048
  9. SYNTHROID [Concomitant]
     Dosage: 137 UG, QD

REACTIONS (4)
  - BLOOD CREATININE INCREASED [None]
  - ERUCTATION [None]
  - MITRAL VALVE REPLACEMENT [None]
  - RASH [None]
